FAERS Safety Report 7563364-6 (Version None)
Quarter: 2011Q2

REPORT INFORMATION
  Report Type: 
  Country: None (occurrence: None)
  Receive Date: 20110622
  Receipt Date: 20110530
  Transmission Date: 20111010
  Serious: Yes (Hospitalization)
  Sender: FDA-Public Use
  Company Number: A0929592A

PATIENT
  Sex: Female

DRUGS (2)
  1. XELODA [Concomitant]
     Dosage: 1000MG TWICE PER DAY
  2. TYKERB [Suspect]
     Dosage: 1250MG PER DAY
     Route: 048
     Dates: start: 20110520

REACTIONS (6)
  - DIARRHOEA [None]
  - VOMITING [None]
  - DEHYDRATION [None]
  - PLEURAL EFFUSION [None]
  - DECREASED APPETITE [None]
  - ASTHENIA [None]
